FAERS Safety Report 13858214 (Version 5)
Quarter: 2020Q4

REPORT INFORMATION
  Report Type: Other
  Country: US (occurrence: US)
  Receive Date: 20170811
  Receipt Date: 20201027
  Transmission Date: 20210113
  Serious: Yes (Death, Hospitalization, Other)
  Sender: FDA-Public Use
  Company Number: US-ROCHE-1975972

PATIENT
  Age: 73 Year
  Sex: Female
  Weight: 95.34 kg

DRUGS (40)
  1. XOLAIR [Suspect]
     Active Substance: OMALIZUMAB
     Dosage: 150 MG EACH ARM
     Route: 058
     Dates: start: 20200604, end: 20200910
  2. XOLAIR [Suspect]
     Active Substance: OMALIZUMAB
  3. IPRATROPIUM/ALBUTEROL [Concomitant]
     Active Substance: ALBUTEROL\IPRATROPIUM
     Dosage: 0.5-2.5 (3) MG/ 3ML SOLUTION
     Dates: start: 20180911
  4. NIFEDIPINE. [Concomitant]
     Active Substance: NIFEDIPINE
     Route: 048
     Dates: start: 20180911
  5. TRAMADOL HYDROCHLORIDE. [Concomitant]
     Active Substance: TRAMADOL HYDROCHLORIDE
     Route: 048
     Dates: start: 20181029
  6. LOSARTAN POTASSIUM. [Concomitant]
     Active Substance: LOSARTAN POTASSIUM
     Route: 048
     Dates: start: 20180911
  7. METOPROLOL. [Concomitant]
     Active Substance: METOPROLOL
  8. PANTOPRAZOLE [Concomitant]
     Active Substance: PANTOPRAZOLE
  9. TRAMADOL HCL [Concomitant]
     Active Substance: TRAMADOL HYDROCHLORIDE
  10. VITAMIN D [Concomitant]
     Active Substance: VITAMIN D NOS
  11. ANASTROZOLE. [Concomitant]
     Active Substance: ANASTROZOLE
     Route: 048
     Dates: start: 20180911
  12. XOLAIR [Suspect]
     Active Substance: OMALIZUMAB
     Indication: CHRONIC OBSTRUCTIVE PULMONARY DISEASE
     Route: 058
     Dates: start: 201610
  13. XOLAIR [Suspect]
     Active Substance: OMALIZUMAB
     Route: 058
     Dates: start: 20191017
  14. XOLAIR [Suspect]
     Active Substance: OMALIZUMAB
  15. CLONIDINE. [Concomitant]
     Active Substance: CLONIDINE
  16. MONTELUKAST [Concomitant]
     Active Substance: MONTELUKAST SODIUM
  17. FUROSEMIDE. [Concomitant]
     Active Substance: FUROSEMIDE
     Route: 048
     Dates: start: 20180911
  18. MAGNESIUM OXIDE. [Concomitant]
     Active Substance: MAGNESIUM OXIDE
     Route: 048
     Dates: start: 20181001
  19. XOLAIR [Suspect]
     Active Substance: OMALIZUMAB
     Indication: ASTHMA
     Route: 058
     Dates: start: 20161204
  20. XOLAIR [Suspect]
     Active Substance: OMALIZUMAB
  21. ASPIRIN. [Concomitant]
     Active Substance: ASPIRIN
     Route: 048
     Dates: start: 20181001
  22. XOLAIR [Suspect]
     Active Substance: OMALIZUMAB
  23. IPRATROPIUM [Concomitant]
     Active Substance: IPRATROPIUM
  24. LEVOTHYROXIN [Concomitant]
     Active Substance: LEVOTHYROXINE
  25. CALCIUM [Concomitant]
     Active Substance: CALCIUM
     Route: 048
     Dates: start: 20190130
  26. SYMBICORT [Concomitant]
     Active Substance: BUDESONIDE\FORMOTEROL FUMARATE DIHYDRATE
     Dosage: 150-4.5 MCG 2 PUFF BY MOUTH
     Route: 048
     Dates: start: 20191108
  27. MONTELUKAST [Concomitant]
     Active Substance: MONTELUKAST SODIUM
     Route: 048
     Dates: start: 20180911
  28. METHYLPREDNISOLONE. [Concomitant]
     Active Substance: METHYLPREDNISOLONE
     Dates: start: 20200729
  29. METOPROLOL SUCCINATE. [Concomitant]
     Active Substance: METOPROLOL SUCCINATE
     Route: 048
     Dates: start: 20180911
  30. XOLAIR [Suspect]
     Active Substance: OMALIZUMAB
     Dosage: 150 ML IN EACH ARM
     Route: 058
     Dates: start: 20200910
  31. NIFEDIPINE. [Concomitant]
     Active Substance: NIFEDIPINE
  32. LIQUITEARS [Concomitant]
     Active Substance: POLYVINYL ALCOHOL
     Dates: start: 20181130
  33. FLUTICASONE PROPRIONATE [Concomitant]
     Active Substance: FLUTICASONE PROPIONATE
     Dosage: 2 SPRAY IN EACH NOSTRIL
     Dates: start: 20190701
  34. CLONIDINE HCL [Concomitant]
     Active Substance: CLONIDINE HYDROCHLORIDE
     Dosage: 2 TABLET BY  MOUTH AT BED TIME
     Route: 048
     Dates: start: 20180911
  35. XOLAIR [Suspect]
     Active Substance: OMALIZUMAB
  36. LOSARTAN POTASSIUM. [Concomitant]
     Active Substance: LOSARTAN POTASSIUM
  37. ALBUTEROL. [Concomitant]
     Active Substance: ALBUTEROL
  38. TYLENOL [Concomitant]
     Active Substance: ACETAMINOPHEN
     Dosage: 1 TABLET 3-4 TIMES A DAY
     Route: 048
     Dates: start: 20190130
  39. VENTOLIN HFA [Concomitant]
     Active Substance: ALBUTEROL SULFATE
     Dosage: INHALE 1 TO  2 PUFF BY EVERY 4-6 HOURS
     Dates: start: 20191213
  40. LEVOTHYROXINE SODIUM. [Concomitant]
     Active Substance: LEVOTHYROXINE SODIUM
     Route: 048
     Dates: start: 20180911

REACTIONS (11)
  - Nausea [Recovered/Resolved]
  - Off label use [Unknown]
  - Dyspnoea [Unknown]
  - Product contamination [Unknown]
  - Chest pain [Unknown]
  - Asthma [Recovered/Resolved]
  - Product use in unapproved indication [Unknown]
  - Dyspnoea [Recovered/Resolved]
  - Cardiac disorder [Unknown]
  - Breast cancer metastatic [Fatal]
  - Chest discomfort [Recovered/Resolved]

NARRATIVE: CASE EVENT DATE: 201707
